FAERS Safety Report 11350011 (Version 1)
Quarter: 2015Q3

REPORT INFORMATION
  Report Type: Report from Study
  Country: US (occurrence: US)
  Receive Date: 20150807
  Receipt Date: 20150807
  Transmission Date: 20151125
  Serious: Yes (Other)
  Sender: FDA-Public Use
  Company Number: US-ASTRAZENECA-2012SE87630

PATIENT
  Age: 51 Year
  Sex: Female

DRUGS (3)
  1. NEXIUM [Suspect]
     Active Substance: ESOMEPRAZOLE MAGNESIUM
     Indication: POLYP
     Route: 048
     Dates: start: 2005
  2. NEXIUM [Suspect]
     Active Substance: ESOMEPRAZOLE MAGNESIUM
     Indication: HIATUS HERNIA
     Route: 048
     Dates: start: 2005
  3. PRILOSEC [Suspect]
     Active Substance: OMEPRAZOLE MAGNESIUM
     Route: 048

REACTIONS (21)
  - Gastrooesophageal reflux disease [Unknown]
  - Psoriasis [Unknown]
  - Psoriatic arthropathy [Unknown]
  - Body height decreased [Unknown]
  - Diarrhoea [Unknown]
  - Off label use [Unknown]
  - Von Willebrand^s disease [Unknown]
  - Rheumatoid arthritis [Unknown]
  - Exostosis [Unknown]
  - Nausea [Unknown]
  - Scoliosis [Unknown]
  - Drug ineffective [Unknown]
  - Contusion [Unknown]
  - Finger deformity [Unknown]
  - Intervertebral disc protrusion [Unknown]
  - Osteoarthritis [Unknown]
  - Product use issue [Unknown]
  - Vomiting [Unknown]
  - Visual impairment [Unknown]
  - Eye irritation [Unknown]
  - Drug dose omission [Unknown]

NARRATIVE: CASE EVENT DATE: 2005
